FAERS Safety Report 6226302 (Version 2)
Quarter: 2013Q1

REPORT INFORMATION
  Report Type: Spontaneous
  Country: US (occurrence: US)
  Receive Date: 20070130
  Receipt Date: 20130326
  Transmission Date: 20140127
  Serious: Yes (Hospitalization, Other)
  Sender: FDA-Public Use
  Company Number: US-RB-004951-07

PATIENT
  Age: 1 Day
  Sex: 0

DRUGS (4)
  1. SUBUTEX [Suspect]
     Dosage: TOOK VARYING DOSES
     Route: 064
     Dates: start: 20060705, end: 20061214
  2. SUBUTEX [Suspect]
     Indication: DRUG DEPENDENCE
     Route: 063
     Dates: start: 20061216, end: 20070215
  3. ALBUTEROL [Concomitant]
     Dosage: UNKNOWN DOSING DETAILS, MOTHER USED AS NEEDED
     Route: 064
  4. ALBUTEROL [Concomitant]
     Indication: ASTHMA
     Dosage: UNKNOWN DOSING DETAILS-MOTHER USED AS NEEDED
     Route: 063

REACTIONS (4)
  - Foetal exposure during pregnancy [Recovered/Resolved]
  - Foetal growth restriction [Recovered/Resolved]
  - Drug withdrawal syndrome neonatal [Recovered/Resolved]
  - Exposure during breast feeding [Recovered/Resolved]
